FAERS Safety Report 7383087-6 (Version None)
Quarter: 2011Q1

REPORT INFORMATION
  Report Type: 
  Country: None (occurrence: None)
  Receive Date: 20110330
  Receipt Date: 20110328
  Transmission Date: 20110831
  Serious: No
  Sender: FDA-Public Use
  Company Number: US-PFIZER INC-2011068872

PATIENT
  Sex: Female
  Weight: 70.295 kg

DRUGS (3)
  1. LISINOPRIL [Concomitant]
     Indication: HYPERTENSION
     Dosage: UNK
  2. GEODON [Suspect]
     Indication: SCHIZOPHRENIA
     Dosage: 60 MG, 1X/DAY
  3. SYNTHROID [Concomitant]
     Indication: THYROID DISORDER
     Dosage: UNK

REACTIONS (3)
  - POOR QUALITY SLEEP [None]
  - WEIGHT INCREASED [None]
  - HYPERSOMNIA [None]
